FAERS Safety Report 14413396 (Version 4)
Quarter: 2018Q2

REPORT INFORMATION
  Report Type: Report from Study
  Country: CA (occurrence: CA)
  Receive Date: 20180119
  Receipt Date: 20180619
  Transmission Date: 20180711
  Serious: Yes (Hospitalization, Other)
  Sender: FDA-Public Use
  Company Number: CA-TAKEDA-2016TUS013674

PATIENT
  Age: 35 Year
  Sex: Female

DRUGS (11)
  1. VEDOLIZUMAB [Suspect]
     Active Substance: VEDOLIZUMAB
     Indication: CROHN^S DISEASE
     Dosage: 300 MG, UNK
     Route: 042
     Dates: start: 20160720
  2. VEDOLIZUMAB [Suspect]
     Active Substance: VEDOLIZUMAB
     Dosage: 300 MG, UNK
     Route: 042
     Dates: start: 20171222
  3. IMURAN [Concomitant]
     Active Substance: AZATHIOPRINE
     Dosage: UNK, QD
  4. PROZAC [Concomitant]
     Active Substance: FLUOXETINE HYDROCHLORIDE
     Dosage: UNK, QD
  5. CELEBREX [Concomitant]
     Active Substance: CELECOXIB
     Dosage: 200 MG, BID
  6. PREVACID [Concomitant]
     Active Substance: LANSOPRAZOLE
     Dosage: 30 MG, BID
  7. PREDNISONE. [Concomitant]
     Active Substance: PREDNISONE
     Dosage: 15 MG, UNK
  8. GABAPENTIN. [Concomitant]
     Active Substance: GABAPENTIN
     Dosage: UNK
  9. CLONAZEPAM. [Concomitant]
     Active Substance: CLONAZEPAM
     Dosage: 0.5 MG, QID
  10. VEDOLIZUMAB [Suspect]
     Active Substance: VEDOLIZUMAB
     Dosage: 300 MG, UNK
     Route: 042
     Dates: start: 20180502
  11. ZOPICLONE [Concomitant]
     Active Substance: ZOPICLONE
     Dosage: UNK, QD

REACTIONS (29)
  - Malaise [Unknown]
  - Somnolence [Unknown]
  - Asthenia [Unknown]
  - Migraine [Unknown]
  - Blood potassium decreased [Unknown]
  - Small intestinal obstruction [Unknown]
  - Gastrointestinal stoma output increased [Recovering/Resolving]
  - Infusion site erythema [Not Recovered/Not Resolved]
  - Balance disorder [Unknown]
  - Speech disorder [Unknown]
  - Arthritis infective [Unknown]
  - Vomiting [Not Recovered/Not Resolved]
  - Abdominal pain [Unknown]
  - Blood sodium decreased [Unknown]
  - Sepsis [Unknown]
  - C-reactive protein decreased [Unknown]
  - Loss of consciousness [Unknown]
  - Abscess [Unknown]
  - Influenza [Unknown]
  - Hypoaesthesia [Unknown]
  - Inflammatory marker increased [Unknown]
  - Hernia [Unknown]
  - Crohn^s disease [Unknown]
  - Infusion site swelling [Not Recovered/Not Resolved]
  - Dysphemia [Unknown]
  - Clumsiness [Unknown]
  - Abdominal pain [Unknown]
  - Fall [Unknown]
  - Pyrexia [Unknown]

NARRATIVE: CASE EVENT DATE: 2016
